FAERS Safety Report 4746832-1 (Version None)
Quarter: 2005Q3

REPORT INFORMATION
  Report Type: 
  Country: None (occurrence: None)
  Receive Date: 20050815
  Receipt Date: 20050803
  Transmission Date: 20060218
  Serious: Yes (Hospitalization)
  Sender: FDA-Public Use
  Company Number: AU-2005-015483

PATIENT
  Age: 33 Year
  Sex: Female

DRUGS (6)
  1. LEUKINE [Suspect]
     Indication: CROHN'S DISEASE
     Dosage: 6 ?G/KG, 1X/DAY, SUBCUTANEOUS
     Route: 058
     Dates: start: 20050628, end: 20050802
  2. NORDETTE (LEVONORGESTREL, ETHINYLESTRADIOL) [Suspect]
     Indication: ORAL CONTRACEPTION
     Dosage: ORAL
     Route: 048
     Dates: start: 19950101
  3. SEREPAX (OXAZEPAM) [Concomitant]
  4. TRAMADOL HCL [Concomitant]
  5. PANADEINE (CODEINE PHOSPHATE) [Concomitant]
  6. VITAMIN B-12 [Concomitant]

REACTIONS (9)
  - CAROTID ARTERY STENOSIS [None]
  - CEREBRAL ARTERY EMBOLISM [None]
  - CEREBRAL ARTERY OCCLUSION [None]
  - CEREBRAL ISCHAEMIA [None]
  - HAEMATOCRIT DECREASED [None]
  - HAEMOGLOBIN INCREASED [None]
  - PLATELET COUNT INCREASED [None]
  - TRANSIENT ISCHAEMIC ATTACK [None]
  - WHITE BLOOD CELL COUNT INCREASED [None]
